FAERS Safety Report 20929961 (Version 1)
Quarter: 2022Q2

REPORT INFORMATION
  Report Type: Spontaneous
  Country: CA (occurrence: None)
  Receive Date: 20220608
  Receipt Date: 20220608
  Transmission Date: 20220721
  Serious: Yes (Death)
  Sender: FDA-Public Use
  Company Number: CA-ROCHE-3110616

PATIENT
  Age: 54 Year
  Sex: Male

DRUGS (5)
  1. CAPECITABINE [Suspect]
     Active Substance: CAPECITABINE
     Indication: Rectal adenocarcinoma
     Dosage: DRUG DOSE FIRST ADMINISTERED IS NOT PROVIDED
     Route: 048
  2. METOPROLOL [Concomitant]
     Active Substance: METOPROLOL
  3. ATORVASTATIN [Concomitant]
     Active Substance: ATORVASTATIN
     Route: 048
  4. TRIUMEQ [Concomitant]
     Active Substance: ABACAVIR SULFATE\DOLUTEGRAVIR SODIUM\LAMIVUDINE
  5. FRAMYCETIN SULFATE [Concomitant]
     Active Substance: FRAMYCETIN SULFATE

REACTIONS (12)
  - Respiratory failure [Fatal]
  - Hyponatraemia [Fatal]
  - Pulseless electrical activity [Fatal]
  - Hypoxia [Fatal]
  - Neutropenia [Fatal]
  - Hypovolaemia [Fatal]
  - Haematemesis [Fatal]
  - Haemorrhage [Fatal]
  - Thrombocytopenia [Fatal]
  - Cardiac arrest [Fatal]
  - Mucosal inflammation [Fatal]
  - Acute kidney injury [Fatal]
